FAERS Safety Report 5161013-8 (Version None)
Quarter: 2006Q4

REPORT INFORMATION
  Report Type: 
  Country: None (occurrence: None)
  Receive Date: 20061130
  Receipt Date: 20060811
  Transmission Date: 20070319
  Serious: Yes (Other)
  Sender: FDA-Public Use
  Company Number: PHBS2006PE12235

PATIENT
  Age: 76 Year
  Sex: Female

DRUGS (2)
  1. FEMARA [Suspect]
     Indication: BREAST CANCER FEMALE
     Dosage: 1 DF, QD
     Route: 048
     Dates: start: 20050401, end: 20060801
  2. CALCIBON [Concomitant]
     Indication: OSTEOPENIA

REACTIONS (3)
  - BLINDNESS UNILATERAL [None]
  - OPTIC NEURITIS [None]
  - VISUAL FIELD DEFECT [None]
